FAERS Safety Report 5192195-X (Version None)
Quarter: 2006Q4

REPORT INFORMATION
  Report Type: 
  Country: None (occurrence: None)
  Receive Date: 20061220
  Receipt Date: 20061218
  Transmission Date: 20070319
  Serious: Yes (Life-Threatening, Hospitalization, Other)
  Sender: FDA-Public Use
  Company Number: HQWYE862622AUG06

PATIENT
  Age: 72 Year
  Sex: Female

DRUGS (5)
  1. GEMTUZUMAB OZOGAMICIN (GEMTUXUMAB OZOGAMICIN, INJECTION) LOT NO. 301-3 [Suspect]
     Indication: ACUTE MYELOID LEUKAEMIA
     Dosage: 9.5 MG,
     Dates: start: 20060810, end: 20060810
  2. FUROSEMIDE [Concomitant]
  3. MEROPENEM [Concomitant]
  4. AMIKACIN [Concomitant]
  5. TEICOPLANIN [Concomitant]

REACTIONS (5)
  - CONDITION AGGRAVATED [None]
  - NEUTROPENIA [None]
  - PNEUMONITIS [None]
  - SEPTIC SHOCK [None]
  - THROMBOCYTOPENIA [None]
